FAERS Safety Report 8018096-7 (Version None)
Quarter: 2011Q4

REPORT INFORMATION
  Report Type: 
  Country: None (occurrence: None)
  Receive Date: 20111228
  Receipt Date: 20111212
  Transmission Date: 20120403
  Serious: Yes (Other)
  Sender: FDA-Public Use
  Company Number: 1000025959

PATIENT
  Age: 33 Year
  Sex: Female

DRUGS (3)
  1. ONDANSETRON (ONDANSETRON) (TABLETS) (ONDANSETRON) [Concomitant]
  2. PHENERGAN (PROMETHAZINE) (TABLETS) (PROMETHAZINE) [Concomitant]
  3. LEXAPRO [Suspect]
     Dosage: 30 MG (30 MG, 1 IN 1 D)

REACTIONS (4)
  - PREGNANCY [None]
  - OVERDOSE [None]
  - MATERNAL EXPOSURE DURING PREGNANCY [None]
  - PREMATURE DELIVERY [None]
